FAERS Safety Report 16257530 (Version 1)
Quarter: 2019Q2

REPORT INFORMATION
  Report Type: Report from Study
  Country: IT (occurrence: IT)
  Receive Date: 20190430
  Receipt Date: 20190430
  Transmission Date: 20190711
  Serious: Yes (Other)
  Sender: FDA-Public Use
  Company Number: IT-TEVA-2019-IT-1044923

PATIENT
  Age: 9 Year
  Sex: Male
  Weight: 37 kg

DRUGS (19)
  1. PEGASPARGASE [Suspect]
     Active Substance: PEGASPARGASE
     Indication: ACUTE LYMPHOCYTIC LEUKAEMIA
     Route: 042
     Dates: start: 20180802, end: 20180827
  2. PAXABEL [Concomitant]
     Dosage: 1 DOSAGE FORMS DAILY;
     Route: 048
     Dates: start: 20180803, end: 20180810
  3. LASIX [Concomitant]
     Active Substance: FUROSEMIDE
     Dosage: 12.5 MILLIGRAM DAILY;
     Route: 048
     Dates: start: 20180803
  4. DIFLUCAN [Concomitant]
     Active Substance: FLUCONAZOLE
     Dosage: 200 MILLIGRAM DAILY;
     Route: 048
     Dates: start: 20180808, end: 20180821
  5. ANTRA [Concomitant]
     Active Substance: OMEPRAZOLE
     Route: 042
  6. ENAPREN [Concomitant]
     Active Substance: ENALAPRIL MALEATE
     Dosage: 5 MILLIGRAM DAILY;
     Route: 048
     Dates: start: 20180803, end: 20180903
  7. URBASON [Concomitant]
     Active Substance: METHYLPREDNISOLONE
     Indication: PREMEDICATION
     Route: 037
     Dates: start: 20180723, end: 20181015
  8. VINCRISTINE [Suspect]
     Active Substance: VINCRISTINE
     Indication: ACUTE LYMPHOCYTIC LEUKAEMIA
     Route: 042
     Dates: start: 20180727, end: 20180830
  9. DAUNOBLASTINA [Suspect]
     Active Substance: DAUNORUBICIN
     Indication: ACUTE LYMPHOCYTIC LEUKAEMIA
     Route: 042
     Dates: start: 20180727, end: 20180830
  10. ZOFRAN [Concomitant]
     Active Substance: ONDANSETRON HYDROCHLORIDE
     Dosage: 6 MILLIGRAM DAILY;
     Route: 042
     Dates: start: 20180723, end: 20180813
  11. DELTACORTENE [Concomitant]
     Active Substance: PREDNISONE
     Dosage: 70 MILLIGRAM DAILY;
     Route: 048
     Dates: start: 20180727
  12. DEURSIL [Concomitant]
     Active Substance: URSODIOL
     Dosage: 600 MILLIGRAM DAILY;
     Route: 048
     Dates: start: 20180811
  13. METHOTREXATE. [Suspect]
     Active Substance: METHOTREXATE
     Indication: ACUTE LYMPHOCYTIC LEUKAEMIA
     Route: 037
     Dates: start: 20180723, end: 20181015
  14. URBASON [Concomitant]
     Active Substance: METHYLPREDNISOLONE
     Dosage: 205 MILLIGRAM DAILY;
     Route: 042
     Dates: start: 20180721
  15. MYCOSTATIN [Concomitant]
     Active Substance: NYSTATIN
     Dosage: 15 ML DAILY;
     Route: 048
     Dates: start: 20180720
  16. DILATREND [Concomitant]
     Active Substance: CARVEDILOL
     Dosage: 1.56 MILLIGRAM DAILY;
     Dates: start: 20180809
  17. ANTITHROMBIN III HUMAN [Concomitant]
     Active Substance: ANTITHROMBIN III HUMAN
     Dosage: 500 IU (INTERNATIONAL UNIT) DAILY;
     Route: 042
     Dates: start: 20180806, end: 20180821
  18. PRIVIGEN [Concomitant]
     Active Substance: HUMAN IMMUNOGLOBULIN G
     Dosage: 15 GRAM DAILY;
     Route: 042
     Dates: start: 20180811, end: 20180812
  19. BACTRIM [Concomitant]
     Active Substance: SULFAMETHOXAZOLE\TRIMETHOPRIM
     Route: 048
     Dates: start: 20180720

REACTIONS (2)
  - Pyrexia [Recovered/Resolved]
  - Aeromonas infection [Recovered/Resolved]

NARRATIVE: CASE EVENT DATE: 20180812
